FAERS Safety Report 19692880 (Version 1)
Quarter: 2021Q3

REPORT INFORMATION
  Report Type: Spontaneous
  Country: JP (occurrence: JP)
  Receive Date: 20210812
  Receipt Date: 20210812
  Transmission Date: 20211014
  Serious: Yes (Other)
  Sender: FDA-Public Use
  Company Number: JP-TEVA-2021-JP-1940017

PATIENT
  Age: 28 Year
  Sex: Male

DRUGS (12)
  1. IRINOTECAN [Suspect]
     Active Substance: IRINOTECAN
     Indication: RECTAL CANCER METASTATIC
     Dosage: ON DAY 1; EVERY 2 WEEKS AS PER THE FOLFIRI REGIMEN
     Route: 050
  2. CETUXIMAB. [Suspect]
     Active Substance: CETUXIMAB
     Indication: RECTAL CANCER METASTATIC
     Dosage: FOR THE FIRST TIME
     Route: 065
  3. CETUXIMAB. [Suspect]
     Active Substance: CETUXIMAB
     Indication: RECTAL CANCER METASTATIC
     Dosage: SUBSEQUENT INJECTIONS
     Route: 065
  4. ATROPINE SULFATE. [Suspect]
     Active Substance: ATROPINE SULFATE
     Indication: CHOLINERGIC SYNDROME
     Route: 065
  5. FLUOROURACIL. [Suspect]
     Active Substance: FLUOROURACIL
     Indication: RECTAL CANCER METASTATIC
     Dosage: ON DAY 1; EVERY 2 WEEKS AS PER THE FOLFIRI REGIMEN
     Route: 065
  6. CHLORPHENIRAMINE MALEATE. [Concomitant]
     Active Substance: CHLORPHENIRAMINE MALEATE
     Indication: PROPHYLAXIS
     Route: 042
  7. MINOCYCLINE HYDROCHLORIDE. [Concomitant]
     Active Substance: MINOCYCLINE HYDROCHLORIDE
     Indication: PROPHYLAXIS
     Route: 048
  8. LEVOFOLINATE CALCIUM [Suspect]
     Active Substance: LEVOLEUCOVORIN CALCIUM
     Indication: RECTAL CANCER METASTATIC
     Dosage: ON DAY 1; EVERY 2 WEEKS AS PER THE FOLFIRI REGIMEN
     Route: 065
  9. SCOPOLAMINE BUTYLBROMIDE [Suspect]
     Active Substance: SCOPOLAMINE
     Indication: CHOLINERGIC SYNDROME
     Route: 042
  10. PALONOSETRON. [Concomitant]
     Active Substance: PALONOSETRON HYDROCHLORIDE
     Indication: PROPHYLAXIS OF NAUSEA AND VOMITING
     Dosage: ON DAY 1
     Route: 042
  11. DEXAMETHASONE. [Concomitant]
     Active Substance: DEXAMETHASONE
     Indication: PROPHYLAXIS OF NAUSEA AND VOMITING
     Dosage: ON DAY 1
     Route: 042
  12. FLUOROURACIL. [Suspect]
     Active Substance: FLUOROURACIL
     Indication: RECTAL CANCER METASTATIC
     Dosage: FOR 46H FROM DAY 1; EVERY 2 WEEKS AS PER THE FOLFIRI REGIMEN
     Route: 065

REACTIONS (4)
  - Cholinergic syndrome [Recovering/Resolving]
  - Drug ineffective [Unknown]
  - Palpitations [Unknown]
  - Respiratory disorder [Unknown]
